FAERS Safety Report 5056202-7 (Version None)
Quarter: 2006Q3

REPORT INFORMATION
  Report Type: 
  Country: None (occurrence: None)
  Receive Date: 20060717
  Receipt Date: 20060703
  Transmission Date: 20061208
  Serious: Yes (Hospitalization)
  Sender: FDA-Public Use
  Company Number: 2006082782

PATIENT
  Age: 4 Year
  Sex: Female

DRUGS (1)
  1. AZITHROMYCIN [Suspect]
     Indication: PNEUMONIA MYCOPLASMAL
     Dosage: ORAL
     Route: 048
     Dates: start: 20060619, end: 20060621

REACTIONS (4)
  - ASTHENIA [None]
  - IMMOBILE [None]
  - MYOSITIS [None]
  - RHABDOMYOLYSIS [None]
